FAERS Safety Report 10228820 (Version 4)
Quarter: 2014Q4

REPORT INFORMATION
  Report Type: Report from Study
  Country: US (occurrence: US)
  Receive Date: 20140610
  Receipt Date: 20141001
  Transmission Date: 20150528
  Serious: Yes (Death, Life-Threatening, Hospitalization)
  Sender: FDA-Public Use
  Company Number: US-ACTELION-A-NJ2014-099868

PATIENT
  Age: 62 Year
  Sex: Male

DRUGS (3)
  1. COUMADIN [Concomitant]
     Active Substance: WARFARIN SODIUM
  2. SILDENAFIL. [Concomitant]
     Active Substance: SILDENAFIL
  3. TRACLEER [Suspect]
     Active Substance: BOSENTAN\BOSENTAN MONOHYDRATE
     Indication: PULMONARY HYPERTENSION
     Dosage: 125 MG, BID
     Route: 048
     Dates: start: 200612

REACTIONS (1)
  - Small cell lung cancer metastatic [Fatal]

NARRATIVE: CASE EVENT DATE: 20140508
